FAERS Safety Report 6313548-X (Version None)
Quarter: 2009Q3

REPORT INFORMATION
  Report Type: 
  Country: None (occurrence: None)
  Receive Date: 20090818
  Receipt Date: 20090810
  Transmission Date: 20100115
  Serious: Yes (Other)
  Sender: FDA-Public Use
  Company Number: BR-JNJFOC-20090804390

PATIENT
  Sex: Female
  Weight: 65 kg

DRUGS (3)
  1. TYLEX [Suspect]
     Indication: ABDOMINAL PAIN UPPER
     Route: 065
  2. DIANE 35 [Concomitant]
     Indication: CONTRACEPTION
  3. OMEPRAZOLE [Concomitant]
     Indication: GASTRITIS

REACTIONS (4)
  - DIZZINESS [None]
  - DRUG INEFFECTIVE [None]
  - FORMICATION [None]
  - HYPOTENSION [None]
